FAERS Safety Report 12451157 (Version 1)
Quarter: 2016Q2

REPORT INFORMATION
  Report Type: Spontaneous
  Country: US (occurrence: None)
  Receive Date: 20160608
  Receipt Date: 20160608
  Transmission Date: 20160815
  Serious: Yes (Hospitalization)
  Sender: FDA-Public Use
  Company Number: None

PATIENT
  Age: 53 Year
  Sex: Male
  Weight: 94.5 kg

DRUGS (1)
  1. PROPOFOL. [Suspect]
     Active Substance: PROPOFOL
     Indication: SEDATION
     Dosage: MCG OTHER IV
     Route: 042

REACTIONS (5)
  - Loss of consciousness [None]
  - Clonus [None]
  - Cough [None]
  - Seizure [None]
  - Hypotension [None]

NARRATIVE: CASE EVENT DATE: 20160606
